FAERS Safety Report 8325630-6 (Version None)
Quarter: 2012Q2

REPORT INFORMATION
  Report Type: 
  Country: None (occurrence: None)
  Receive Date: 20120501
  Receipt Date: 20120424
  Transmission Date: 20120825
  Serious: Yes (Hospitalization)
  Sender: FDA-Public Use
  Company Number: JP-B.I. PHARMACEUTICALS,INC./RIDGEFIELD-2012-BP-09497NB

PATIENT
  Age: 66 Year
  Sex: Female

DRUGS (5)
  1. AMLODIPINE [Concomitant]
     Indication: HYPERTENSION
     Dosage: 5 MG
     Route: 048
     Dates: start: 20120225
  2. PRADAXA [Suspect]
     Indication: ATRIAL FIBRILLATION
     Dosage: 300 MG
     Route: 048
     Dates: start: 20120220, end: 20120305
  3. BISOPROLOL FUMARATE [Concomitant]
     Route: 065
  4. MICARDIS [Concomitant]
     Indication: HYPERTENSION
     Dosage: 40 MG
     Route: 048
     Dates: start: 20120220
  5. PRADAXA [Suspect]
     Dosage: 220 MG
     Route: 048
     Dates: start: 20120305

REACTIONS (3)
  - DYSPEPSIA [None]
  - CEREBRAL INFARCTION [None]
  - DRUG EFFECT DECREASED [None]
